FAERS Safety Report 9774466 (Version 1)
Quarter: 2013Q4

REPORT INFORMATION
  Report Type: Spontaneous
  Country: US (occurrence: US)
  Receive Date: 20131220
  Receipt Date: 20131220
  Transmission Date: 20140711
  Serious: No
  Sender: FDA-Public Use
  Company Number: US-009507513-1312USA009297

PATIENT
  Age: 80 Year
  Sex: Female

DRUGS (1)
  1. JANUVIA [Suspect]
     Dosage: 100 MG, QD
     Route: 048
     Dates: start: 20131204, end: 201312

REACTIONS (2)
  - Rash [Recovered/Resolved]
  - Rash [Recovered/Resolved]
